FAERS Safety Report 17939260 (Version 1)
Quarter: 2020Q2

REPORT INFORMATION
  Report Type: Spontaneous
  Country: US (occurrence: US)
  Receive Date: 20200625
  Receipt Date: 20200625
  Transmission Date: 20200714
  Serious: No
  Sender: FDA-Public Use
  Company Number: US-APOTEX-2020AP006510

PATIENT

DRUGS (1)
  1. BUDESONIDE. [Suspect]
     Active Substance: BUDESONIDE
     Indication: HYPERSENSITIVITY
     Dosage: UNK
     Route: 045

REACTIONS (7)
  - Eye pruritus [Recovered/Resolved]
  - Sneezing [Recovered/Resolved]
  - Hypersensitivity [Recovered/Resolved]
  - Product substitution issue [Unknown]
  - Rhinorrhoea [Recovered/Resolved]
  - Drug ineffective [Unknown]
  - Condition aggravated [Recovered/Resolved]
